FAERS Safety Report 23110156 (Version 1)
Quarter: 2023Q4

REPORT INFORMATION
  Report Type: Spontaneous
  Country: US (occurrence: None)
  Receive Date: 20231024
  Receipt Date: 20231024
  Transmission Date: 20240110
  Serious: Yes (Hospitalization)
  Sender: FDA-Public Use
  Company Number: None

PATIENT
  Age: 70 Year
  Sex: Male
  Weight: 75 kg

DRUGS (3)
  1. LORAZEPAM [Suspect]
     Active Substance: LORAZEPAM
     Dates: start: 20230412, end: 20230412
  2. MIDAZOLAM HYDROCHLORIDE [Suspect]
     Active Substance: MIDAZOLAM HYDROCHLORIDE
     Dates: start: 20230412, end: 20230413
  3. HALOPERIDOL [Suspect]
     Active Substance: HALOPERIDOL

REACTIONS (6)
  - Confusional state [None]
  - Sedation [None]
  - Somnolence [None]
  - Unresponsive to stimuli [None]
  - Restlessness [None]
  - Delirium [None]

NARRATIVE: CASE EVENT DATE: 20230413
